FAERS Safety Report 24759005 (Version 1)
Quarter: 2024Q4

REPORT INFORMATION
  Report Type: Spontaneous
  Country: CH (occurrence: CH)
  Receive Date: 20241220
  Receipt Date: 20241220
  Transmission Date: 20250114
  Serious: Yes (Life-Threatening, Hospitalization, Other)
  Sender: GLAND PHARMA LTD
  Company Number: CH-GLANDPHARMA-CH-2024GLNLIT01299

PATIENT
  Age: 6 Decade
  Sex: Male

DRUGS (4)
  1. OXALIPLATIN [Suspect]
     Active Substance: OXALIPLATIN
     Indication: Adenocarcinoma of colon
     Route: 065
  2. FLUOROURACIL [Suspect]
     Active Substance: FLUOROURACIL
     Indication: Adenocarcinoma of colon
     Route: 040
  3. FLUOROURACIL [Suspect]
     Active Substance: FLUOROURACIL
     Route: 065
  4. LEUCOVORIN [Concomitant]
     Active Substance: LEUCOVORIN\LEUCOVORIN CALCIUM
     Route: 065

REACTIONS (2)
  - Hypertriglyceridaemia [Recovering/Resolving]
  - Polyneuropathy [Unknown]
